FAERS Safety Report 16695217 (Version 1)
Quarter: 2019Q3

REPORT INFORMATION
  Report Type: Spontaneous
  Country: US (occurrence: US)
  Receive Date: 20190813
  Receipt Date: 20190813
  Transmission Date: 20191004
  Serious: No
  Sender: FDA-Public Use
  Company Number: US-CELGENEUS-USA-20190800994

PATIENT
  Sex: Female
  Weight: 88 kg

DRUGS (1)
  1. OTEZLA [Suspect]
     Active Substance: APREMILAST
     Indication: PSORIATIC ARTHROPATHY
     Dosage: 60 MILLIGRAM
     Route: 048
     Dates: start: 20190501

REACTIONS (8)
  - Toothache [Unknown]
  - Oral pain [Unknown]
  - Diarrhoea [Unknown]
  - Multiple allergies [Unknown]
  - Bowel movement irregularity [Unknown]
  - Nasopharyngitis [Not Recovered/Not Resolved]
  - Tooth disorder [Unknown]
  - Headache [Not Recovered/Not Resolved]

NARRATIVE: CASE EVENT DATE: 2019
